FAERS Safety Report 15280451 (Version 2)
Quarter: 2018Q4

REPORT INFORMATION
  Report Type: Spontaneous
  Country: US (occurrence: US)
  Receive Date: 20180815
  Receipt Date: 20181106
  Transmission Date: 20190204
  Serious: No
  Sender: FDA-Public Use
  Company Number: US-TAKEDA-2018TUS024225

PATIENT
  Age: 90 Year
  Sex: Female
  Weight: 51.25 kg

DRUGS (1)
  1. ROZEREM [Suspect]
     Active Substance: RAMELTEON
     Indication: INSOMNIA
     Dosage: 8 MG, QD
     Route: 048
     Dates: start: 20180730, end: 20180804

REACTIONS (4)
  - Pruritus [Recovered/Resolved]
  - Somnolence [Unknown]
  - Rash pruritic [Unknown]
  - Dizziness [Unknown]

NARRATIVE: CASE EVENT DATE: 20180730
